FAERS Safety Report 10065344 (Version 1)
Quarter: 2014Q2

REPORT INFORMATION
  Report Type: Spontaneous
  Country: US (occurrence: None)
  Receive Date: 20140407
  Receipt Date: 20140407
  Transmission Date: 20141212
  Serious: No
  Sender: FDA-Public Use
  Company Number: None

PATIENT
  Age: 42 Year
  Sex: Female

DRUGS (2)
  1. FLUOXETINE [Suspect]
     Indication: MAJOR DEPRESSION
     Dosage: 2 CAPSULES
     Route: 048
     Dates: start: 20140326, end: 20140328
  2. FLUOXETINE [Suspect]
     Dosage: 2 CAPSULES
     Route: 048
     Dates: start: 20140326, end: 20140328

REACTIONS (2)
  - Swollen tongue [None]
  - Product substitution issue [None]
